FAERS Safety Report 5723627-3 (Version None)
Quarter: 2008Q2

REPORT INFORMATION
  Report Type: 
  Country: None (occurrence: None)
  Receive Date: 20080425
  Receipt Date: 20080417
  Transmission Date: 20081010
  Serious: Yes (Hospitalization)
  Sender: FDA-Public Use
  Company Number: 2008-02481

PATIENT
  Age: 83 Year
  Sex: Male

DRUGS (4)
  1. URSODIOL (WATSON LABORATORIES)(URSODIOL) CAPSULE, 300MG [Suspect]
     Indication: SUICIDE ATTEMPT
     Dosage: 100 TABLET, SINGLE, ORAL
     Route: 048
     Dates: start: 20080101
  2. HACHIMIJIO-GAN(HERBAL EXTRACTS NOS) [Suspect]
     Indication: DRUG USE FOR UNKNOWN INDICATION
     Dates: start: 20080101
  3. GLIMEPIRIDE [Suspect]
     Indication: DRUG USE FOR UNKNOWN INDICATION
     Dates: start: 20080101
  4. SEIROGAN(CREOSOTE, GLYCYRRHIZA EXTRACT, HERBAL EXTRACTS NOS) [Suspect]
     Indication: DRUG USE FOR UNKNOWN INDICATION
     Dates: start: 20080101

REACTIONS (4)
  - ABNORMAL BEHAVIOUR [None]
  - CONFUSIONAL STATE [None]
  - GLASGOW COMA SCALE ABNORMAL [None]
  - MULTIPLE DRUG OVERDOSE INTENTIONAL [None]
